FAERS Safety Report 24706840 (Version 1)
Quarter: 2024Q4

REPORT INFORMATION
  Report Type: Report from Study
  Country: US (occurrence: US)
  Receive Date: 20241206
  Receipt Date: 20241206
  Transmission Date: 20250114
  Serious: Yes (Hospitalization)
  Sender: HLS THERAPEUTICS
  Company Number: US-HLS-202401789

PATIENT

DRUGS (2)
  1. CLOZAPINE [Suspect]
     Active Substance: CLOZAPINE
     Indication: Autism spectrum disorder
     Route: 065
  2. CLOZAPINE [Suspect]
     Active Substance: CLOZAPINE
     Indication: Aggression
     Route: 065

REACTIONS (3)
  - Off label use [Unknown]
  - Mental disorder [Unknown]
  - Product dose omission issue [Unknown]
